FAERS Safety Report 13154169 (Version 1)
Quarter: 2017Q1

REPORT INFORMATION
  Report Type: Spontaneous
  Country: US (occurrence: US)
  Receive Date: 20170126
  Receipt Date: 20170126
  Transmission Date: 20170428
  Serious: Yes (Other)
  Sender: FDA-Public Use
  Company Number: None

PATIENT
  Age: 81 Year
  Sex: Female
  Weight: 57.15 kg

DRUGS (7)
  1. VITAMIN B [Concomitant]
     Active Substance: VITAMIN B
  2. CALTRATE [Concomitant]
     Active Substance: CALCIUM CARBONATE
  3. BETAMETHASONE DIPROPIONATE CREAM 0.5% [Suspect]
     Active Substance: BETAMETHASONE DIPROPIONATE
     Indication: HERPES ZOSTER
     Dosage: QUANITY - 2X A DAY AND PRN - TOPICAL
     Route: 061
     Dates: start: 20161104, end: 20161106
  4. GLUCOSAMINE CHONDROITIN [Concomitant]
     Active Substance: CHONDROITIN SULFATE (BOVINE)\GLUCOSAMINE HYDROCHLORIDE
  5. VITAMIN C [Concomitant]
     Active Substance: ASCORBIC ACID
  6. ZIOPTAN [Concomitant]
     Active Substance: TAFLUPROST
  7. L-THYROXINE [Concomitant]
     Active Substance: LEVOTHYROXINE

REACTIONS (1)
  - Pruritus [None]
